FAERS Safety Report 25423561 (Version 1)
Quarter: 2025Q2

REPORT INFORMATION
  Report Type: Other
  Country: AU (occurrence: AU)
  Receive Date: 20250611
  Receipt Date: 20250611
  Transmission Date: 20250716
  Serious: Yes (Other)
  Sender: LUPIN
  Company Number: AU-LUPIN PHARMACEUTICALS INC.-2025-04836

PATIENT
  Age: 88 Year

DRUGS (1)
  1. RAMIPRIL [Suspect]
     Active Substance: RAMIPRIL
     Indication: Product used for unknown indication
     Route: 065

REACTIONS (8)
  - Angioedema [Unknown]
  - Laryngeal oedema [Unknown]
  - Respiratory arrest [Unknown]
  - Respiratory tract oedema [Unknown]
  - Dysphagia [Unknown]
  - Dyspnoea [Unknown]
  - Swollen tongue [Unknown]
  - Tongue oedema [Unknown]
